FAERS Safety Report 21594179 (Version 1)
Quarter: 2022Q4

REPORT INFORMATION
  Report Type: Spontaneous
  Country: BR (occurrence: BR)
  Receive Date: 20221115
  Receipt Date: 20221115
  Transmission Date: 20230112
  Serious: Yes (Other)
  Sender: FDA-Public Use
  Company Number: BR-AstraZeneca-2022A371187

PATIENT

DRUGS (4)
  1. ZOLADEX [Suspect]
     Active Substance: GOSERELIN ACETATE
     Indication: Leiomyoma
     Dosage: 1 MG, MONTHLY
     Route: 058
     Dates: start: 20210506, end: 20221023
  2. ZOLADEX [Suspect]
     Active Substance: GOSERELIN ACETATE
     Indication: Benign uterine neoplasm
  3. ZOLADEX [Suspect]
     Active Substance: GOSERELIN ACETATE
     Indication: Leiomyoma
     Dosage: UNK
     Route: 065
  4. ZOLADEX [Suspect]
     Active Substance: GOSERELIN ACETATE
     Indication: Benign uterine neoplasm

REACTIONS (5)
  - Epilepsy [Unknown]
  - Libido decreased [Unknown]
  - Tic [Unknown]
  - Alopecia [Unknown]
  - Headache [Unknown]

NARRATIVE: CASE EVENT DATE: 20220410
